FAERS Safety Report 7836432-9 (Version None)
Quarter: 2011Q4

REPORT INFORMATION
  Report Type: 
  Country: None (occurrence: None)
  Receive Date: 20111024
  Receipt Date: 20101029
  Transmission Date: 20120403
  Serious: Yes (Hospitalization)
  Sender: FDA-Public Use
  Company Number: US-ABBOTT-94P-163-0512131-00

PATIENT
  Age: 38 Year
  Sex: Female

DRUGS (1)
  1. LEUPROLIDE ACETATE [Suspect]

REACTIONS (1)
  - MYOCARDIAL INFARCTION [None]
